FAERS Safety Report 5235142-4 (Version None)
Quarter: 2007Q1

REPORT INFORMATION
  Report Type: 
  Country: None (occurrence: None)
  Receive Date: 20070207
  Receipt Date: 20070124
  Transmission Date: 20070707
  Serious: Yes (Other)
  Sender: FDA-Public Use
  Company Number: B0456849A

PATIENT
  Age: 48 Year
  Sex: Male

DRUGS (4)
  1. LAMICTAL [Suspect]
     Indication: EPILEPSY
     Dosage: UNK / SEE DOSAGE TEXT / UNKNOWN
  2. CARBAMAZEPINE (CARBAMAZEPINE) (FORMULATION UNKNOWN) [Suspect]
  3. GABAPENTIN [Concomitant]
  4. VALPROATE SODIUM [Concomitant]

REACTIONS (3)
  - CONDITION AGGRAVATED [None]
  - EPILEPSY [None]
  - PARKINSON'S DISEASE [None]
